FAERS Safety Report 7451641-9 (Version None)
Quarter: 2011Q2

REPORT INFORMATION
  Report Type: 
  Country: None (occurrence: None)
  Receive Date: 20110502
  Receipt Date: 20100722
  Transmission Date: 20111010
  Serious: No
  Sender: FDA-Public Use
  Company Number: US-ASTRAZENECA-2009UW01369

PATIENT
  Age: 53 Year
  Sex: Female

DRUGS (2)
  1. NEXIUM [Suspect]
     Route: 048
     Dates: start: 20040101, end: 20090107
  2. PRILOSEC [Suspect]
     Route: 048

REACTIONS (4)
  - COUGH [None]
  - FOOT FRACTURE [None]
  - NASAL CONGESTION [None]
  - FALL [None]
